FAERS Safety Report 18684686 (Version 1)
Quarter: 2020Q4

REPORT INFORMATION
  Report Type: Report from Study
  Country: US (occurrence: US)
  Receive Date: 20201230
  Receipt Date: 20201230
  Transmission Date: 20210114
  Serious: Yes (Other)
  Sender: FDA-Public Use
  Company Number: US-BRISTOL-MYERS SQUIBB COMPANY-BMS-2020-109319

PATIENT
  Sex: Female

DRUGS (1)
  1. WARFARIN SODIUM. [Suspect]
     Active Substance: WARFARIN SODIUM
     Indication: HEART VALVE OPERATION
     Dosage: UNK
     Route: 065
     Dates: start: 1989

REACTIONS (4)
  - Ageusia [Unknown]
  - Product dispensing error [Unknown]
  - Mitral valve disease [Unknown]
  - Expired product administered [Unknown]
